FAERS Safety Report 12590151 (Version 1)
Quarter: 2016Q3

REPORT INFORMATION
  Report Type: Spontaneous
  Country: GB (occurrence: GB)
  Receive Date: 20160725
  Receipt Date: 20160725
  Transmission Date: 20161109
  Serious: Yes (Other)
  Sender: FDA-Public Use
  Company Number: GB-GLAXOSMITHKLINE-GB2016104887

PATIENT
  Age: 76 Year
  Sex: Male
  Weight: 48.4 kg

DRUGS (11)
  1. NEFOPAM [Concomitant]
     Active Substance: NEFOPAM
  2. TEMAZEPAM. [Concomitant]
     Active Substance: TEMAZEPAM
  3. BISOPROLOL [Concomitant]
     Active Substance: BISOPROLOL
     Dosage: 2.5
  4. VENTOLIN [Concomitant]
     Active Substance: ALBUTEROL SULFATE
  5. ONEALFA [Concomitant]
     Active Substance: ALFACALCIDOL
  6. PARACETAMOL [Concomitant]
     Active Substance: ACETAMINOPHEN
  7. LANSOPRAZOLE. [Concomitant]
     Active Substance: LANSOPRAZOLE
  8. FORTISIP [Concomitant]
     Active Substance: CARBOHYDRATES\FATTY ACIDS\MINERALS\PROTEIN\VITAMINS
  9. KETOVITE (CHOLINE CHLORIDE + CYANOCOBALAMIN + ERGOCALCIFEROL + RETINOL [Concomitant]
  10. CALCIUM CARBONATE. [Concomitant]
     Active Substance: CALCIUM CARBONATE
     Dosage: UNK
  11. ANORO ELLIPTA [Suspect]
     Active Substance: UMECLIDINIUM BROMIDE\VILANTEROL TRIFENATATE
     Indication: CHRONIC OBSTRUCTIVE PULMONARY DISEASE
     Dosage: 55MCG / 22MCG
     Route: 055
     Dates: start: 20160630, end: 20160630

REACTIONS (3)
  - Malaise [Unknown]
  - Somnolence [Recovered/Resolved with Sequelae]
  - Dizziness [Recovered/Resolved with Sequelae]

NARRATIVE: CASE EVENT DATE: 20160630
